FAERS Safety Report 8451566-6 (Version None)
Quarter: 2012Q2

REPORT INFORMATION
  Report Type: 
  Country: None (occurrence: None)
  Receive Date: 20120620
  Receipt Date: 20120227
  Transmission Date: 20120825
  Serious: No
  Sender: FDA-Public Use
  Company Number: US-VERTEX PHARMACEUTICALS INC.-AE-2012-003328

PATIENT
  Sex: Female
  Weight: 63.56 kg

DRUGS (5)
  1. ALLOPURINOL [Concomitant]
     Indication: GOUT
     Route: 048
  2. ATENOLOL [Concomitant]
     Indication: HYPERTENSION
     Route: 048
  3. RIBAVIRIN [Concomitant]
     Indication: HEPATITIS C
     Route: 048
     Dates: start: 20120121
  4. INCIVEK [Suspect]
     Indication: HEPATITIS C
     Route: 048
     Dates: start: 20120121
  5. PEGASYS [Concomitant]
     Indication: HEPATITIS C
     Route: 058
     Dates: start: 20120121

REACTIONS (3)
  - ANIMAL BITE [None]
  - WOUND INFECTION [None]
  - WEIGHT INCREASED [None]
